FAERS Safety Report 17892283 (Version 1)
Quarter: 2020Q2

REPORT INFORMATION
  Report Type: Spontaneous
  Country: FR (occurrence: FR)
  Receive Date: 20200612
  Receipt Date: 20200612
  Transmission Date: 20200714
  Serious: Yes (Hospitalization)
  Sender: FDA-Public Use
  Company Number: NVSC2020FR164350

PATIENT
  Age: 60 Year
  Sex: Female

DRUGS (3)
  1. ETHAMBUTOL DIHYDROCHLORIDE [Suspect]
     Active Substance: ETHAMBUTOL HYDROCHLORIDE
     Indication: TUBERCULOSIS
     Dosage: 1500 MG
     Route: 048
     Dates: start: 20191030, end: 20200319
  2. RIFAMPICINE SANDOZ 150, CAPSULES 150 MG [Suspect]
     Active Substance: RIFAMPIN
     Indication: TUBERCULOSIS
     Dosage: 900 MG
     Route: 048
     Dates: start: 20191102, end: 20200326
  3. LEVOFLOXACINE SANDOZ 250 MG FILMOMHULDE TABLETTEN [Suspect]
     Active Substance: LEVOFLOXACIN
     Indication: TUBERCULOSIS
     Dosage: 1 G
     Route: 048
     Dates: start: 20191031, end: 20200326

REACTIONS (2)
  - Neuropathy peripheral [Recovering/Resolving]
  - Optic neuropathy [Not Recovered/Not Resolved]

NARRATIVE: CASE EVENT DATE: 202003
